FAERS Safety Report 6150986-2 (Version None)
Quarter: 2009Q2

REPORT INFORMATION
  Report Type: 
  Country: None (occurrence: None)
  Receive Date: 20090410
  Receipt Date: 20090206
  Transmission Date: 20091009
  Serious: No
  Sender: FDA-Public Use
  Company Number: A0762368A

PATIENT
  Age: 48 Year
  Sex: Male
  Weight: 74.1 kg

DRUGS (1)
  1. TYKERB [Suspect]
     Indication: NEOPLASM MALIGNANT
     Dosage: 2TAB PER DAY
     Route: 048

REACTIONS (1)
  - DIARRHOEA [None]
